FAERS Safety Report 5929305-X (Version None)
Quarter: 2008Q4

REPORT INFORMATION
  Report Type: 
  Country: None (occurrence: None)
  Receive Date: 20081024
  Receipt Date: 20081021
  Transmission Date: 20090506
  Serious: Yes (Death)
  Sender: FDA-Public Use
  Company Number: US-ASTRAZENECA-2008AC02404

PATIENT

DRUGS (2)
  1. PROPOFOL [Suspect]
     Route: 042
  2. VASOPRESSOR AGENTS [Concomitant]

REACTIONS (4)
  - ANOXIC ENCEPHALOPATHY [None]
  - PROPOFOL INFUSION SYNDROME [None]
  - RENAL FAILURE ACUTE [None]
  - RHABDOMYOLYSIS [None]
